FAERS Safety Report 7481459-2 (Version None)
Quarter: 2011Q2

REPORT INFORMATION
  Report Type: 
  Country: None (occurrence: None)
  Receive Date: 20110516
  Receipt Date: 20110512
  Transmission Date: 20111010
  Serious: Yes (Death)
  Sender: FDA-Public Use
  Company Number: PHHY2011US40245

PATIENT
  Sex: Male

DRUGS (10)
  1. ZOCOR [Concomitant]
     Dosage: 10 MG, UNK
  2. PAROXETINE HCL [Concomitant]
     Dosage: 10 MG, UNK
  3. PREVACID [Concomitant]
     Dosage: 15 MG, UNK
  4. PLAVIX [Concomitant]
     Dosage: 300 MG, UNK
  5. GLEEVEC [Suspect]
     Dosage: 3 DF, QD
     Route: 048
  6. ENALAPRIL [Concomitant]
     Dosage: 10 MG, UNK
  7. METOPROLOL TARTRATE [Concomitant]
     Dosage: 100 MG, UNK
  8. ISOSORBIDE DINITRATE [Concomitant]
     Dosage: 10 MG, UNK
  9. FUROSEMIDE [Concomitant]
     Dosage: 20 MG, UNK
  10. ASPIRIN [Concomitant]
     Dosage: 81 MG, UNK

REACTIONS (1)
  - DEATH [None]
